FAERS Safety Report 19601452 (Version 3)
Quarter: 2021Q3

REPORT INFORMATION
  Report Type: Spontaneous
  Country: US (occurrence: US)
  Receive Date: 20210722
  Receipt Date: 20210922
  Transmission Date: 20211014
  Serious: No
  Sender: FDA-Public Use
  Company Number: US-SA-2021SA236700

PATIENT
  Age: 38 Year
  Sex: Female

DRUGS (1)
  1. LANTUS SOLOSTAR [Suspect]
     Active Substance: INSULIN GLARGINE
     Indication: TYPE 1 DIABETES MELLITUS
     Dosage: 30 IU, Q12H
     Route: 065

REACTIONS (4)
  - Injection site pain [Unknown]
  - Device issue [Unknown]
  - Illness [Unknown]
  - Inappropriate schedule of product administration [Unknown]
